FAERS Safety Report 9195841 (Version 1)
Quarter: 2013Q1

REPORT INFORMATION
  Report Type: Spontaneous
  Country: US (occurrence: None)
  Receive Date: 20130312
  Receipt Date: 20130312
  Transmission Date: 20140127
  Serious: No
  Sender: FDA-Public Use
  Company Number: 2012033228

PATIENT
  Age: 74 Year
  Sex: Female
  Weight: 56.25 kg

DRUGS (25)
  1. HIZENTRA [Suspect]
     Indication: IMMUNODEFICIENCY COMMON VARIABLE
     Dosage: (9G 1X/WEEK, 3 SITES OVER 1-2 HOURS SUBCUTANEOUS
     Route: 058
     Dates: start: 20120821, end: 20120821
  2. DIPHENHYDRAMINE (DIPHENHYDRAMINE) [Concomitant]
  3. LIDOCAINE/PRILOCAINE [Concomitant]
  4. EPI-PEN (EPINEPHRINE HYDROCHLORIDE) [Concomitant]
  5. CITRUCEL (METHYLCELLULOSE) [Concomitant]
  6. ADVAIR (SERETIDE) [Concomitant]
  7. AMITRIPYLINE (AMITRIPTYLINE) [Concomitant]
  8. MUCINEX (GUAIFENESIN) [Concomitant]
  9. COENZYME Q10 (UBIDECARENONE) [Concomitant]
  10. VITAMIN C [Concomitant]
  11. XOPENEX (LEVOSALBUTAMOL) [Concomitant]
  12. VITAMINS [Concomitant]
  13. KLONOPIN (CLONAZEPAM) [Concomitant]
  14. CENTRUM (CENTRUM) [Concomitant]
  15. ZOCOR (SIMVASTATIN) [Concomitant]
  16. FLUTICASONE (FLUTICASONE) [Concomitant]
  17. HYDROCHLOROTHIAZIDE (HYDROCHLOROTHIAZIDE) [Concomitant]
  18. VENTOLIN (SALBUTAMOL) [Concomitant]
  19. ASPIRIN (ACETYLSALICYLIC ACID) [Concomitant]
  20. DILTIAZEM [Concomitant]
  21. ACETAMINOPHEN (PARACETAMOL) [Concomitant]
  22. ALBUTEROL (SALBUTAMOL) [Concomitant]
  23. NITROGLYCERINE (GLYCERYL TRINITRATE) [Concomitant]
  24. PRAVASTATIN (PRAVASTATIN) [Concomitant]
  25. BENADRYL (DIPHENHYDRAMINE HYDROCHLORIDE) [Concomitant]

REACTIONS (3)
  - Bronchitis [None]
  - Infusion site urticaria [None]
  - Oedema peripheral [None]
